FAERS Safety Report 7113592-9 (Version None)
Quarter: 2010Q4

REPORT INFORMATION
  Report Type: 
  Country: None (occurrence: None)
  Receive Date: 20101119
  Receipt Date: 20101116
  Transmission Date: 20110411
  Serious: Yes (Death)
  Sender: FDA-Public Use
  Company Number: JP-NOVOPROD-317420

PATIENT
  Age: 44 Year
  Sex: Female
  Weight: 52 kg

DRUGS (9)
  1. VICTOZA [Suspect]
     Indication: TYPE 2 DIABETES MELLITUS
     Dosage: 03 MG, QD
     Route: 058
     Dates: start: 20100908
  2. VICTOZA [Suspect]
     Dosage: 0.9 MG, QD
     Route: 058
     Dates: start: 20100922
  3. ANTIDEPRESSANTS [Concomitant]
     Indication: DEPRESSION
  4. MELBIN                             /00082702/ [Concomitant]
     Indication: TYPE 2 DIABETES MELLITUS
     Dosage: 1000 MG, QD
     Route: 048
     Dates: start: 20100908
  5. AMOXAN [Concomitant]
     Dosage: 5 MG, QD
     Route: 048
  6. SOLANAX [Concomitant]
     Dosage: 0.8 MG, QD
  7. MYSLEE [Concomitant]
     Dosage: 5 MG, QD
  8. LENDEM [Concomitant]
     Dosage: 0.25 MG, QD
     Route: 048
  9. KAMIKIHITOU [Concomitant]
     Dosage: 5 G, QD
     Route: 048

REACTIONS (1)
  - COMPLETED SUICIDE [None]
